FAERS Safety Report 9235603 (Version 1)
Quarter: 2013Q2

REPORT INFORMATION
  Report Type: Spontaneous
  Country: GB (occurrence: GB)
  Receive Date: 20130417
  Receipt Date: 20130417
  Transmission Date: 20140414
  Serious: Yes (Death, Hospitalization, Other)
  Sender: FDA-Public Use
  Company Number: GB-SANOFI-AVENTIS-2013SA037960

PATIENT
  Age: 74 Year
  Sex: Male
  Weight: 76 kg

DRUGS (7)
  1. CLEXANE [Suspect]
     Indication: PRODUCT USED FOR UNKNOWN INDICATION
     Dosage: 40 MG, ONCE
     Route: 065
     Dates: start: 20111208, end: 20111208
  2. CLEXANE [Suspect]
     Indication: PRODUCT USED FOR UNKNOWN INDICATION
     Dosage: 80 MG, QD
     Route: 065
     Dates: start: 20111225, end: 20111225
  3. CLEXANE [Suspect]
     Indication: PRODUCT USED FOR UNKNOWN INDICATION
     Dosage: 75 MG, QD
     Route: 058
     Dates: start: 20111227, end: 20111227
  4. CLEXANE [Suspect]
     Indication: PRODUCT USED FOR UNKNOWN INDICATION
     Dosage: 60 MG, QD
     Route: 065
     Dates: start: 20111228, end: 20111228
  5. CLEXANE [Suspect]
     Indication: PRODUCT USED FOR UNKNOWN INDICATION
     Dosage: 60 MG, QD
     Route: 058
     Dates: start: 20111226, end: 20111226
  6. XARELTO [Suspect]
     Indication: HIP ARTHROPLASTY
     Dosage: 10 MG, QD
     Route: 065
     Dates: start: 20111208, end: 20111225
  7. XARELTO [Suspect]
     Indication: THROMBOSIS PROPHYLAXIS
     Dosage: 10 MG, QD
     Route: 065
     Dates: start: 20111208, end: 20111225

REACTIONS (7)
  - Thrombocytopenia [Fatal]
  - Confusional state [Unknown]
  - Subdural haematoma [Fatal]
  - Lower gastrointestinal haemorrhage [Unknown]
  - Epistaxis [Unknown]
  - Diarrhoea [Unknown]
  - Rash macular [Unknown]
